FAERS Safety Report 5382904-9 (Version None)
Quarter: 2007Q3

REPORT INFORMATION
  Report Type: 
  Country: None (occurrence: None)
  Receive Date: 20070710
  Receipt Date: 20070702
  Transmission Date: 20080115
  Serious: Yes (Other)
  Sender: FDA-Public Use
  Company Number: FR-BRISTOL-MYERS SQUIBB COMPANY-13838693

PATIENT
  Sex: Female

DRUGS (2)
  1. ERBITUX [Suspect]
  2. CISPLATIN [Suspect]
     Route: 048

REACTIONS (1)
  - THERMAL BURN [None]
